FAERS Safety Report 5675235-0 (Version None)
Quarter: 2008Q1

REPORT INFORMATION
  Report Type: 
  Country: None (occurrence: None)
  Receive Date: 20080320
  Receipt Date: 20080313
  Transmission Date: 20080703
  Serious: Yes (Death, Hospitalization)
  Sender: FDA-Public Use
  Company Number: JP-ASTRAZENECA-2008SE01133

PATIENT
  Age: 30534 Day
  Sex: Male
  Weight: 64 kg

DRUGS (14)
  1. BLOPRESS [Suspect]
     Indication: CARDIAC FAILURE CHRONIC
     Route: 048
     Dates: start: 20061207, end: 20080218
  2. ASPIRIN [Concomitant]
     Indication: ISCHAEMIC HEART DISEASE PROPHYLAXIS
     Route: 048
  3. AMLODIN [Concomitant]
     Indication: HYPERTENSION
     Route: 048
     Dates: end: 20080218
  4. SIGMART [Concomitant]
     Indication: ANGINA PECTORIS
     Route: 048
     Dates: end: 20080218
  5. ALTAT [Concomitant]
     Indication: GASTRITIS
     Route: 048
     Dates: end: 20080218
  6. LENDORMIN D [Concomitant]
     Indication: INSOMNIA
     Route: 048
     Dates: end: 20080218
  7. MEVALOTIN [Concomitant]
     Indication: HYPERLIPIDAEMIA
     Route: 048
     Dates: end: 20080218
  8. ADONA [Concomitant]
     Indication: MACULAR DEGENERATION
     Route: 048
     Dates: end: 20080218
  9. CARNACULIN [Concomitant]
     Indication: MACULAR DEGENERATION
     Route: 048
     Dates: end: 20080218
  10. CYANOCOBALAMIN [Concomitant]
     Indication: LUMBAR SPINAL STENOSIS
     Route: 048
     Dates: end: 20080218
  11. MS HOT PACK [Concomitant]
     Indication: LUMBAR SPINAL STENOSIS
  12. OPALMON [Concomitant]
     Indication: LUMBAR SPINAL STENOSIS
     Route: 048
     Dates: end: 20080218
  13. SERENACE [Concomitant]
     Indication: RESTLESSNESS
     Dates: start: 20080217
  14. LASIX [Concomitant]
     Indication: CARDIAC FAILURE CHRONIC
     Route: 042
     Dates: start: 20080217

REACTIONS (1)
  - INTERSTITIAL LUNG DISEASE [None]
